FAERS Safety Report 14122627 (Version 1)
Quarter: 2017Q4

REPORT INFORMATION
  Report Type: Report from Study
  Country: JP (occurrence: JP)
  Receive Date: 20171024
  Receipt Date: 20171024
  Transmission Date: 20180321
  Serious: Yes (Death, Hospitalization)
  Sender: FDA-Public Use
  Company Number: JP-AMGEN-JPNCT2017160676

PATIENT
  Age: 74 Year
  Sex: Female
  Weight: 44 kg

DRUGS (7)
  1. ISOSORBIDE DINITRATE. [Concomitant]
     Active Substance: ISOSORBIDE DINITRATE
     Dosage: 1 DF, UNK
     Route: 062
     Dates: start: 20150214
  2. SODIUM PICOSULFATE [Concomitant]
     Active Substance: SODIUM PICOSULFATE
     Indication: CONSTIPATION
     Dosage: UNK UNK, AS NECESSARY
     Route: 048
  3. DEPAKENE [Concomitant]
     Active Substance: VALPROIC ACID
     Indication: EPILEPSY
     Dosage: 800 MG, UNK
     Route: 048
  4. OMEPRAL [Concomitant]
     Active Substance: OMEPRAZOLE
     Dosage: 40 MG, UNK
     Route: 065
     Dates: start: 20150404, end: 20150413
  5. DARBEPOETIN ALFA [Suspect]
     Active Substance: DARBEPOETIN ALFA
     Indication: MYELODYSPLASTIC SYNDROME
     Dosage: 120 MUG, QWK
     Route: 058
     Dates: start: 20150219, end: 20150326
  6. DARBEPOETIN ALFA [Suspect]
     Active Substance: DARBEPOETIN ALFA
     Dosage: 120 MUG, Q2WK
     Route: 058
     Dates: start: 20150408
  7. CIPROXAN [Concomitant]
     Active Substance: CIPROFLOXACIN
     Dosage: 400 MG, UNK
     Dates: start: 20150331, end: 20150413

REACTIONS (6)
  - Pneumonia [Fatal]
  - Gastrostomy [Recovered/Resolved]
  - Gastrointestinal haemorrhage [Recovered/Resolved]
  - Cardiac failure congestive [Recovered/Resolved]
  - Hypertension [Not Recovered/Not Resolved]
  - Postoperative wound infection [Recovered/Resolved]

NARRATIVE: CASE EVENT DATE: 201502
